FAERS Safety Report 7235692-5 (Version None)
Quarter: 2011Q1

REPORT INFORMATION
  Report Type: 
  Country: None (occurrence: None)
  Receive Date: 20110120
  Receipt Date: 20101119
  Transmission Date: 20110831
  Serious: No
  Sender: FDA-Public Use
  Company Number: US-BAYER-2010-006045

PATIENT
  Sex: Female
  Weight: 63 kg

DRUGS (1)
  1. ALEVE (CAPLET) [Suspect]
     Indication: BACK PAIN

REACTIONS (1)
  - DYSGEUSIA [None]
